FAERS Safety Report 7071846-9 (Version None)
Quarter: 2010Q4

REPORT INFORMATION
  Report Type: 
  Country: None (occurrence: None)
  Receive Date: 20101029
  Receipt Date: 20091027
  Transmission Date: 20110411
  Serious: No
  Sender: FDA-Public Use
  Company Number: A0813628A

PATIENT
  Age: 67 Year
  Sex: Male

DRUGS (7)
  1. ADVAIR DISKUS 100/50 [Suspect]
     Dosage: 1PUFF TWICE PER DAY
     Route: 055
  2. LEXAPRO [Concomitant]
  3. SYNTHROID [Concomitant]
  4. KLONOPIN [Concomitant]
  5. QUINAPRIL [Concomitant]
  6. SIMVASTATIN [Concomitant]
  7. REMERON [Concomitant]

REACTIONS (1)
  - LARYNGITIS [None]
